FAERS Safety Report 8591795-4 (Version None)
Quarter: 2012Q3

REPORT INFORMATION
  Report Type: 
  Country: None (occurrence: None)
  Receive Date: 20120814
  Receipt Date: 20120807
  Transmission Date: 20120928
  Serious: Yes (Other)
  Sender: FDA-Public Use
  Company Number: PHHY2012VE069530

PATIENT
  Sex: Female

DRUGS (1)
  1. ZOLEDRONOC ACID [Suspect]
     Dosage: UNK UKN, UNK
     Route: 042
     Dates: start: 20120701

REACTIONS (5)
  - HEAD INJURY [None]
  - DIZZINESS [None]
  - ARTHRALGIA [None]
  - FALL [None]
  - FEELING ABNORMAL [None]
